FAERS Safety Report 8824739 (Version 1)
Quarter: 2012Q4

REPORT INFORMATION
  Report Type: 
  Country: JP (occurrence: JP)
  Receive Date: 20121004
  Receipt Date: 20121004
  Transmission Date: 20130627
  Serious: Yes (Hospitalization, Other)
  Sender: FDA-Public Use
  Company Number: JP-PFIZER INC-2012236761

PATIENT
  Age: 81 Year
  Sex: Female

DRUGS (1)
  1. JZOLOFT [Suspect]
     Dosage: 50 mg, 2x/day
     Route: 048

REACTIONS (2)
  - Compression fracture [Unknown]
  - Fall [Unknown]
